FAERS Safety Report 15561545 (Version 1)
Quarter: 2018Q4

REPORT INFORMATION
  Report Type: Spontaneous
  Country: IT (occurrence: IT)
  Receive Date: 20181029
  Receipt Date: 20181029
  Transmission Date: 20190205
  Serious: Yes (Other)
  Sender: FDA-Public Use
  Company Number: IT-PFIZER INC-2018439034

PATIENT
  Age: 8 Year
  Sex: Male
  Weight: 21 kg

DRUGS (3)
  1. VINCRISTINA PFIZER ITALIA [Suspect]
     Active Substance: VINCRISTINE
     Indication: HODGKIN^S DISEASE
     Dosage: 1.3 MG, WEEKLY
     Route: 042
     Dates: start: 20180903, end: 20180917
  2. ETOPOSIDE SANDOZ [Concomitant]
     Active Substance: ETOPOSIDE
     Dosage: 108.8 MG, UNK
     Route: 042
     Dates: start: 20180903, end: 20180907
  3. DOXORUBICINA ACCORD [Concomitant]
     Dosage: 34.8 MG, UNK
     Route: 042
     Dates: start: 20180903, end: 20180917

REACTIONS (1)
  - Neuropathy peripheral [Recovered/Resolved]

NARRATIVE: CASE EVENT DATE: 20180917
